FAERS Safety Report 13637346 (Version 1)
Quarter: 2017Q2

REPORT INFORMATION
  Report Type: Spontaneous
  Country: US (occurrence: US)
  Receive Date: 20170609
  Receipt Date: 20170609
  Transmission Date: 20170830
  Serious: No
  Sender: FDA-Public Use
  Company Number: US-ASTELLAS-2017US011574

PATIENT
  Sex: Male

DRUGS (3)
  1. CRESEMBA [Suspect]
     Active Substance: ISAVUCONAZONIUM SULFATE
     Indication: GRAFT VERSUS HOST DISEASE
  2. CRESEMBA [Suspect]
     Active Substance: ISAVUCONAZONIUM SULFATE
     Indication: STEM CELL TRANSPLANT
  3. CRESEMBA [Suspect]
     Active Substance: ISAVUCONAZONIUM SULFATE
     Indication: ACUTE MYELOID LEUKAEMIA
     Dosage: 372 MG (TWO 186 MILLIGRAM TABLETS), ONCE DAILY
     Route: 048
     Dates: start: 20170322, end: 20170530

REACTIONS (3)
  - Off label use [Unknown]
  - Tremor [Recovering/Resolving]
  - Asthenia [Recovering/Resolving]
